FAERS Safety Report 8252384-4 (Version None)
Quarter: 2012Q2

REPORT INFORMATION
  Report Type: 
  Country: None (occurrence: None)
  Receive Date: 20120402
  Receipt Date: 20110603
  Transmission Date: 20120825
  Serious: No
  Sender: FDA-Public Use
  Company Number: US-ABBOTT-11P-163-0804642-00

PATIENT
  Age: 62 Year
  Sex: Female
  Weight: 55.909 kg

DRUGS (1)
  1. TESTOSTERONE [Suspect]
     Indication: ACCIDENTAL EXPOSURE
     Dosage: DAILY DOSE: 5 GRAM(S)
     Route: 062
     Dates: start: 20090101

REACTIONS (5)
  - HEART RATE INCREASED [None]
  - ACCIDENTAL EXPOSURE [None]
  - BLOOD PRESSURE INCREASED [None]
  - HEADACHE [None]
  - VISUAL IMPAIRMENT [None]
